FAERS Safety Report 16316408 (Version 2)
Quarter: 2020Q4

REPORT INFORMATION
  Report Type: Spontaneous
  Country: US (occurrence: US)
  Receive Date: 20190515
  Receipt Date: 20201113
  Transmission Date: 20210113
  Serious: Yes (Hospitalization, Other)
  Sender: FDA-Public Use
  Company Number: US-AMNEAL PHARMACEUTICALS-2019AMN00557

PATIENT
  Age: 1 Year
  Sex: Female
  Weight: 10.2 kg

DRUGS (1)
  1. VIGABATRIN. [Suspect]
     Active Substance: VIGABATRIN
     Indication: EPILEPSY
     Dosage: 500 MG, 2X/DAY
     Route: 048

REACTIONS (3)
  - Seizure [Unknown]
  - Therapy cessation [Unknown]
  - Adverse event [Unknown]

NARRATIVE: CASE EVENT DATE: 2020
